FAERS Safety Report 26135498 (Version 1)
Quarter: 2025Q4

REPORT INFORMATION
  Report Type: Report from Study
  Country: CA (occurrence: CA)
  Receive Date: 20251209
  Receipt Date: 20251209
  Transmission Date: 20260118
  Serious: Yes (Death, Other)
  Sender: ASTELLAS
  Company Number: CA-PFIZER INC-202500238890

PATIENT
  Age: 69 Year
  Sex: Male

DRUGS (2)
  1. ENFORTUMAB VEDOTIN-EJFV [Suspect]
     Active Substance: ENFORTUMAB VEDOTIN-EJFV
     Indication: Transitional cell carcinoma metastatic
     Route: 050
  2. PEMBROLIZUMAB [Suspect]
     Active Substance: PEMBROLIZUMAB
     Indication: Product used for unknown indication
     Dosage: 200 MG, EVERY 3 WEEKS
     Route: 042

REACTIONS (8)
  - Blood test abnormal [Fatal]
  - Blood urine present [Fatal]
  - Dark circles under eyes [Fatal]
  - Death [Fatal]
  - Fatigue [Fatal]
  - Haemoglobin abnormal [Fatal]
  - Pallor [Fatal]
  - Red blood cell count decreased [Fatal]
